FAERS Safety Report 8868913 (Version 5)
Quarter: 2013Q2

REPORT INFORMATION
  Report Type: Report from Study
  Country: BR (occurrence: BR)
  Receive Date: 20121027
  Receipt Date: 20130410
  Transmission Date: 20140414
  Serious: Yes (Other)
  Sender: FDA-Public Use
  Company Number: BR-US-EMD SERONO, INC.-7150606

PATIENT
  Age: 32 Year
  Sex: Female

DRUGS (8)
  1. REBIF [Suspect]
     Indication: RELAPSING-REMITTING MULTIPLE SCLEROSIS
     Dates: start: 20120531
  2. CALCIUM CARBONATE [Concomitant]
     Indication: PRODUCT USED FOR UNKNOWN INDICATION
  3. ALENIA (ALINIA) [Concomitant]
     Indication: PRODUCT USED FOR UNKNOWN INDICATION
  4. IBUPROFEN [Concomitant]
     Indication: PREMEDICATION
  5. PARACETAMOL [Concomitant]
     Indication: PREMEDICATION
  6. AMITRIPTYLINE [Concomitant]
     Indication: PRODUCT USED FOR UNKNOWN INDICATION
  7. RIVOTRIL [Concomitant]
     Indication: PRODUCT USED FOR UNKNOWN INDICATION
  8. DEPURA [Concomitant]
     Indication: PRODUCT USED FOR UNKNOWN INDICATION

REACTIONS (16)
  - Haemorrhagic ovarian cyst [Recovered/Resolved]
  - Astigmatism [Unknown]
  - Respiratory fatigue [Unknown]
  - Vitamin D deficiency [Recovered/Resolved]
  - Rhinorrhoea [Unknown]
  - Local swelling [Recovered/Resolved]
  - Nausea [Unknown]
  - Dry mouth [Unknown]
  - Pyrexia [Recovering/Resolving]
  - Headache [Not Recovered/Not Resolved]
  - Chills [Unknown]
  - Aspartate aminotransferase abnormal [Recovered/Resolved]
  - Fatigue [Unknown]
  - Injection site haematoma [Not Recovered/Not Resolved]
  - Injection site pain [Unknown]
  - Injection site nodule [Unknown]
